FAERS Safety Report 7182956-X (Version None)
Quarter: 2010Q4

REPORT INFORMATION
  Report Type: 
  Country: None (occurrence: None)
  Receive Date: 20101222
  Receipt Date: 20101208
  Transmission Date: 20110411
  Serious: Yes (Disabling)
  Sender: FDA-Public Use
  Company Number: IT-CELGENEUS-083-21880-09071232

PATIENT
  Sex: Female
  Weight: 76 kg

DRUGS (5)
  1. REVLIMID [Suspect]
     Indication: DIFFUSE LARGE B-CELL LYMPHOMA
     Route: 048
     Dates: start: 20090605
  2. VINCRISTINE [Suspect]
     Indication: LYMPHOMA
     Route: 051
     Dates: start: 20090529, end: 20090529
  3. VINCRISTINE [Suspect]
     Route: 051
     Dates: start: 20090605, end: 20090605
  4. VINCRISTINE [Suspect]
     Route: 051
     Dates: start: 20090612, end: 20090612
  5. PREDNISOLONE [Suspect]
     Indication: LYMPHOMA
     Route: 048
     Dates: start: 20090529, end: 20090605

REACTIONS (1)
  - PERIPHERAL SENSORIMOTOR NEUROPATHY [None]
